FAERS Safety Report 13358204 (Version 2)
Quarter: 2017Q2

REPORT INFORMATION
  Report Type: Spontaneous
  Country: US (occurrence: US)
  Receive Date: 20170322
  Receipt Date: 20170410
  Transmission Date: 20170830
  Serious: Yes (Hospitalization, Other)
  Sender: FDA-Public Use
  Company Number: US-TEVA-750319USA

PATIENT
  Age: 69 Year
  Sex: Female

DRUGS (15)
  1. OXYBUTYNIN [Concomitant]
     Active Substance: OXYBUTYNIN
  2. ROPINIROLE. [Concomitant]
     Active Substance: ROPINIROLE
  3. AMPYRA [Concomitant]
     Active Substance: DALFAMPRIDINE
  4. CARBAMAZEPINE. [Concomitant]
     Active Substance: CARBAMAZEPINE
  5. CITALOPRAM [Concomitant]
     Active Substance: CITALOPRAM HYDROBROMIDE
  6. LOVASTATIN. [Concomitant]
     Active Substance: LOVASTATIN
  7. ALLOPURINOL. [Concomitant]
     Active Substance: ALLOPURINOL
  8. POTASSIUM CHLORIDE. [Concomitant]
     Active Substance: POTASSIUM CHLORIDE
  9. BACLOFEN. [Concomitant]
     Active Substance: BACLOFEN
  10. HYDROCODONE BITARTRATE AND ACETAMINOPHEN [Concomitant]
     Active Substance: ACETAMINOPHEN\HYDROCODONE BITARTRATE
  11. BUPROPION. [Concomitant]
     Active Substance: BUPROPION
  12. GABAPENTIN. [Concomitant]
     Active Substance: GABAPENTIN
  13. COPAXONE [Suspect]
     Active Substance: GLATIRAMER ACETATE
     Indication: MULTIPLE SCLEROSIS
     Route: 058
     Dates: start: 20160130
  14. FERROUS SULFATE. [Concomitant]
     Active Substance: FERROUS SULFATE
  15. AZITHROMYCIN ANHYDROUS. [Concomitant]
     Active Substance: AZITHROMYCIN ANHYDROUS

REACTIONS (2)
  - Multiple sclerosis [Unknown]
  - Colon cancer [Unknown]

NARRATIVE: CASE EVENT DATE: 201703
